FAERS Safety Report 7909893-4 (Version None)
Quarter: 2011Q4

REPORT INFORMATION
  Report Type: 
  Country: None (occurrence: None)
  Receive Date: 20111111
  Receipt Date: 20111108
  Transmission Date: 20120403
  Serious: Yes (Death)
  Sender: FDA-Public Use
  Company Number: DE-BAYER-2011-067938

PATIENT
  Age: 51 Year
  Sex: Male
  Weight: 75 kg

DRUGS (3)
  1. NOVALGIN [Concomitant]
     Dosage: UNK
  2. AVELOX [Suspect]
     Indication: BRONCHITIS
     Dosage: 400 MG, QD
     Dates: start: 20110523
  3. METOPROLOL [Concomitant]
     Indication: HYPERTENSION
     Dosage: UNK

REACTIONS (1)
  - PULMONARY EMBOLISM [None]
